FAERS Safety Report 11558363 (Version 1)
Quarter: 2015Q3

REPORT INFORMATION
  Report Type: Spontaneous
  Country: US (occurrence: US)
  Receive Date: 20150928
  Receipt Date: 20150928
  Transmission Date: 20151125
  Serious: No
  Sender: FDA-Public Use
  Company Number: US-PFIZER INC-2015309182

PATIENT
  Sex: Female

DRUGS (1)
  1. JUNIOR STRENGTH ADVIL [Suspect]
     Active Substance: IBUPROFEN
     Indication: PAIN
     Dosage: 3 DF, UNK
     Dates: start: 20150913

REACTIONS (2)
  - Drug administered to patient of inappropriate age [Unknown]
  - Oral discomfort [Unknown]

NARRATIVE: CASE EVENT DATE: 201509
